FAERS Safety Report 4688001-X (Version None)
Quarter: 2005Q2

REPORT INFORMATION
  Report Type: 
  Country: None (occurrence: None)
  Receive Date: 20050608
  Receipt Date: 20050531
  Transmission Date: 20051028
  Serious: Yes (Other)
  Sender: FDA-Public Use
  Company Number: 200511232BCC

PATIENT
  Age: 70 Year
  Sex: Male
  Weight: 83.0083 kg

DRUGS (1)
  1. ALEVE [Suspect]
     Dosage: 880 MG, TOTAL DAILY, ORAL
     Route: 048

REACTIONS (1)
  - BLOOD PRESSURE INCREASED [None]
